FAERS Safety Report 14843356 (Version 1)
Quarter: 2018Q2

REPORT INFORMATION
  Report Type: Other
  Country: US (occurrence: US)
  Receive Date: 20180503
  Receipt Date: 20180503
  Transmission Date: 20180711
  Serious: Yes (Hospitalization)
  Sender: FDA-Public Use
  Company Number: US-BRECKENRIDGE PHARMACEUTICAL, INC.-2047127

PATIENT
  Age: 15 Year
  Sex: Male

DRUGS (1)
  1. METHYLPHENIDATE IMMEDIATE-RELEASE 5 MG AND EXTENDED RELEASE 36 MG [Suspect]
     Active Substance: METHYLPHENIDATE

REACTIONS (5)
  - Tachycardia [None]
  - Agitation [None]
  - Suicide attempt [Recovered/Resolved]
  - Hypertension [None]
  - Intentional overdose [None]
